FAERS Safety Report 7021623-X (Version None)
Quarter: 2010Q3

REPORT INFORMATION
  Report Type: 
  Country: None (occurrence: None)
  Receive Date: 20100928
  Receipt Date: 20100921
  Transmission Date: 20110219
  Serious: Yes (Hospitalization, Other)
  Sender: FDA-Public Use
  Company Number: 2010SP050847

PATIENT
  Sex: Male

DRUGS (1)
  1. ORMIGREIN (ORMIGREIN  01755201/) [Suspect]
     Indication: MIGRAINE
     Dosage: PO
     Route: 048
     Dates: end: 20100101

REACTIONS (3)
  - CONDITION AGGRAVATED [None]
  - DRUG DEPENDENCE [None]
  - MIGRAINE [None]
